FAERS Safety Report 21155688 (Version 2)
Quarter: 2022Q3

REPORT INFORMATION
  Report Type: Report from Study
  Country: MX (occurrence: MX)
  Receive Date: 20220801
  Receipt Date: 20220816
  Transmission Date: 20221027
  Serious: Yes (Hospitalization, Other)
  Sender: FDA-Public Use
  Company Number: MX-NOVARTISPH-NVSC2022MX165024

PATIENT
  Age: 59 Year
  Sex: Female
  Weight: 53 kg

DRUGS (1)
  1. KISQALI [Suspect]
     Active Substance: RIBOCICLIB
     Indication: Breast cancer
     Dosage: UNK
     Route: 048

REACTIONS (26)
  - Dehydration [Unknown]
  - Disease recurrence [Unknown]
  - Vomiting [Unknown]
  - Gastritis [Unknown]
  - Gastrointestinal pain [Unknown]
  - Inflammation [Unknown]
  - Metastases to liver [Unknown]
  - Cancer pain [Unknown]
  - Metastasis [Unknown]
  - Pulmonary pain [Unknown]
  - Weight decreased [Unknown]
  - Gastrooesophageal reflux disease [Not Recovered/Not Resolved]
  - Taste disorder [Unknown]
  - Pain [Unknown]
  - Constipation [Unknown]
  - Dry mouth [Unknown]
  - Abdominal pain [Unknown]
  - Asthenia [Unknown]
  - Abdominal discomfort [Unknown]
  - Malaise [Unknown]
  - Nausea [Unknown]
  - Decreased appetite [Unknown]
  - Fatigue [Unknown]
  - Memory impairment [Unknown]
  - Eating disorder [Unknown]
  - Movement disorder [Unknown]

NARRATIVE: CASE EVENT DATE: 20220517
